FAERS Safety Report 10407296 (Version 1)
Quarter: 2014Q3

REPORT INFORMATION
  Report Type: Spontaneous
  Country: US (occurrence: US)
  Receive Date: 20140825
  Receipt Date: 20140825
  Transmission Date: 20150326
  Serious: Yes (Other)
  Sender: FDA-Public Use
  Company Number: US-ELI_LILLY_AND_COMPANY-US201408005333

PATIENT
  Sex: Female

DRUGS (1)
  1. CYMBALTA [Suspect]
     Active Substance: DULOXETINE HYDROCHLORIDE
     Indication: NEUROPATHY PERIPHERAL
     Dosage: UNK
     Route: 065
     Dates: start: 201108, end: 201202

REACTIONS (11)
  - Paraesthesia [Unknown]
  - Pain [Unknown]
  - Communication disorder [Unknown]
  - Anxiety [Unknown]
  - Fatigue [Unknown]
  - Off label use [Recovered/Resolved]
  - Drug withdrawal syndrome [Unknown]
  - Memory impairment [Unknown]
  - Depression [Unknown]
  - Vomiting [Unknown]
  - Nausea [Unknown]
